FAERS Safety Report 6136887-4 (Version None)
Quarter: 2009Q1

REPORT INFORMATION
  Report Type: 
  Country: None (occurrence: None)
  Receive Date: 20090330
  Receipt Date: 20090320
  Transmission Date: 20090719
  Serious: Yes (Other)
  Sender: FDA-Public Use
  Company Number: US-ABBOTT-09P-163-0564224-00

PATIENT
  Sex: Male
  Weight: 83.99 kg

DRUGS (12)
  1. HUMIRA [Suspect]
     Indication: CROHN'S DISEASE
     Route: 058
     Dates: start: 20080101
  2. SPIRIVA [Concomitant]
     Indication: ASTHMA
     Route: 055
  3. SINGULAIR [Concomitant]
     Indication: ASTHMA
     Route: 048
  4. BENAZEPRIL HYDROCHLORIDE [Concomitant]
     Indication: HYPERTENSION
     Route: 048
  5. HYDROCHLOROTHIAZIDE [Concomitant]
     Indication: HYPERTENSION
     Route: 048
  6. WELCHOL [Concomitant]
     Indication: BLOOD CHOLESTEROL INCREASED
     Route: 048
  7. ALBUTEROL SULFATE [Concomitant]
     Indication: ASTHMA
     Route: 048
  8. XOPENEX [Concomitant]
     Indication: ASTHMA
     Route: 048
  9. UNKNOWN STEROIDAL INHALER [Concomitant]
     Indication: ASTHMA
     Route: 055
     Dates: start: 20090301
  10. ASPIRIN [Concomitant]
     Indication: CORONARY ARTERY DISEASE
     Route: 048
  11. SLOW-MAG [Concomitant]
     Indication: MEDICAL DIET
     Route: 048
  12. ZANTAC [Concomitant]
     Indication: GASTROOESOPHAGEAL REFLUX DISEASE
     Route: 048

REACTIONS (2)
  - BLADDER CANCER [None]
  - URINARY TRACT INFECTION [None]
